FAERS Safety Report 16750484 (Version 4)
Quarter: 2019Q4

REPORT INFORMATION
  Report Type: Spontaneous
  Country: AR (occurrence: AR)
  Receive Date: 20190828
  Receipt Date: 20191021
  Transmission Date: 20200122
  Serious: Yes (Life-Threatening, Other)
  Sender: FDA-Public Use
  Company Number: AR-PFIZER INC-2019370051

PATIENT
  Age: 63 Year
  Sex: Female

DRUGS (3)
  1. IBRANCE [Suspect]
     Active Substance: PALBOCICLIB
     Indication: BREAST CANCER METASTATIC
     Dosage: 125 MG, CYCLIC (DAILY, 3X1 SCHEME)
     Dates: start: 20190801, end: 20190814
  2. ZOLEDRONIC ACID. [Concomitant]
     Active Substance: ZOLEDRONIC ACID
     Dosage: UNK, MONTHLY
  3. LETROZOLE. [Concomitant]
     Active Substance: LETROZOLE
     Dosage: 1 DF, DAILY

REACTIONS (12)
  - Red blood cell count decreased [Not Recovered/Not Resolved]
  - Malaise [Recovering/Resolving]
  - Haematocrit decreased [Recovering/Resolving]
  - Asthenia [Recovering/Resolving]
  - White blood cell count decreased [Not Recovered/Not Resolved]
  - Dizziness [Recovering/Resolving]
  - Cystitis [Recovering/Resolving]
  - Gait disturbance [Recovering/Resolving]
  - Tonsillitis [Recovered/Resolved]
  - Thrombocytopenia [Recovered/Resolved]
  - Urinary tract infection [Recovered/Resolved]
  - Neutropenia [Not Recovered/Not Resolved]

NARRATIVE: CASE EVENT DATE: 20190814
